FAERS Safety Report 11346996 (Version 1)
Quarter: 2015Q3

REPORT INFORMATION
  Report Type: Spontaneous
  Country: US (occurrence: US)
  Receive Date: 20150803
  Receipt Date: 20150803
  Transmission Date: 20151125
  Serious: No
  Sender: FDA-Public Use
  Company Number: US-ELI_LILLY_AND_COMPANY-US201102005918

PATIENT
  Age: 9 Year
  Sex: Female
  Weight: 43.08 kg

DRUGS (1)
  1. STRATTERA [Suspect]
     Active Substance: ATOMOXETINE HYDROCHLORIDE
     Dosage: 40 MG, DAILY (1/D)

REACTIONS (3)
  - Crying [Unknown]
  - Anxiety [Unknown]
  - Extra dose administered [Unknown]

NARRATIVE: CASE EVENT DATE: 20110218
